FAERS Safety Report 4588680-1 (Version None)
Quarter: 2005Q1

REPORT INFORMATION
  Report Type: 
  Country: None (occurrence: None)
  Receive Date: 20050222
  Receipt Date: 20041201
  Transmission Date: 20050727
  Serious: Yes (Hospitalization)
  Sender: FDA-Public Use
  Company Number: US-MERCK-0412USA00630

PATIENT
  Age: 51 Year
  Sex: Female
  Weight: 107 kg

DRUGS (10)
  1. VIOXX [Suspect]
     Indication: BACK DISORDER
     Route: 065
     Dates: start: 19991005, end: 19991201
  2. DICLOFENAC SODIUM [Concomitant]
     Route: 065
  3. CYCLOBENZAPRINE HYDROCHLORIDE [Concomitant]
     Route: 065
  4. PREMARIN [Concomitant]
     Route: 065
  5. ZOCOR [Concomitant]
     Route: 065
  6. SUDAFED 12 HOUR [Concomitant]
     Route: 065
  7. GUAIFENESIN [Concomitant]
     Route: 065
  8. AMOXICILLIN [Concomitant]
     Indication: COUGH
     Route: 065
  9. PRAVACHOL [Concomitant]
     Route: 065
  10. LIPITOR [Concomitant]
     Route: 065
     Dates: start: 19990101

REACTIONS (13)
  - ANGINA PECTORIS [None]
  - ATELECTASIS [None]
  - ATHEROSCLEROSIS [None]
  - BACK PAIN [None]
  - BLOOD CHOLESTEROL INCREASED [None]
  - CARDIAC DISORDER [None]
  - CHEST PAIN [None]
  - CORNEAL ABRASION [None]
  - CORONARY ARTERY DISEASE [None]
  - CORONARY ARTERY OCCLUSION [None]
  - HYPERTENSION [None]
  - MYOCARDIAL INFARCTION [None]
  - PYREXIA [None]
